FAERS Safety Report 7628127-1 (Version None)
Quarter: 2011Q3

REPORT INFORMATION
  Report Type: 
  Country: None (occurrence: None)
  Receive Date: 20110720
  Receipt Date: 20110720
  Transmission Date: 20111222
  Serious: Yes (Life-Threatening, Other)
  Sender: FDA-Public Use
  Company Number: None

PATIENT
  Weight: 76.2043 kg

DRUGS (1)
  1. ZYCLARA [Suspect]

REACTIONS (1)
  - INTERNATIONAL NORMALISED RATIO INCREASED [None]
